FAERS Safety Report 21111706 (Version 3)
Quarter: 2022Q3

REPORT INFORMATION
  Report Type: Spontaneous
  Country: US (occurrence: US)
  Receive Date: 20220721
  Receipt Date: 20220905
  Transmission Date: 20221026
  Serious: Yes (Other)
  Sender: FDA-Public Use
  Company Number: US-GLAXOSMITHKLINE-US2022AMR107182

PATIENT

DRUGS (4)
  1. MUPIROCIN [Suspect]
     Active Substance: MUPIROCIN
     Indication: Product used for unknown indication
     Dosage: UNK
  2. FLONASE [Suspect]
     Active Substance: FLUTICASONE PROPIONATE
     Indication: Product used for unknown indication
     Dosage: UNK
  3. PFIZER-BIONTECH COVID-19 VACCINE [Suspect]
     Active Substance: TOZINAMERAN
     Indication: COVID-19 prophylaxis
     Dosage: UNK
     Dates: start: 20210331
  4. METHYLPREDNISOLONE [Suspect]
     Active Substance: METHYLPREDNISOLONE
     Indication: Product used for unknown indication
     Dosage: UNK

REACTIONS (44)
  - Neuropathy peripheral [Unknown]
  - Bell^s palsy [Unknown]
  - Swelling face [Unknown]
  - Abdominal pain upper [Unknown]
  - Dyspepsia [Unknown]
  - Constipation [Unknown]
  - Abdominal discomfort [Unknown]
  - Irritable bowel syndrome [Unknown]
  - Swelling [Unknown]
  - Rhinorrhoea [Unknown]
  - Oropharyngeal pain [Unknown]
  - Palpitations [Unknown]
  - Hypoacusis [Unknown]
  - Tinnitus [Unknown]
  - Blood pressure increased [Unknown]
  - Epistaxis [Unknown]
  - Bacterial infection [Unknown]
  - Throat tightness [Unknown]
  - Polyp [Unknown]
  - Dysphagia [Unknown]
  - Headache [Unknown]
  - Inflammation [Unknown]
  - Feeling abnormal [Unknown]
  - Pruritus [Unknown]
  - Herpes zoster [Unknown]
  - Cheilitis [Unknown]
  - Myalgia [Unknown]
  - Fatigue [Unknown]
  - Condition aggravated [Unknown]
  - Pallor [Unknown]
  - Muscle tightness [Unknown]
  - Pollakiuria [Unknown]
  - Swollen tongue [Unknown]
  - Oral discomfort [Unknown]
  - Urinary tract discomfort [Unknown]
  - Immune system disorder [Unknown]
  - Dyspnoea [Unknown]
  - Oral discomfort [Unknown]
  - Bone pain [Unknown]
  - Productive cough [Unknown]
  - Cheilitis [Unknown]
  - Blister [Unknown]
  - Rash [Unknown]
  - Sensation of foreign body [Unknown]

NARRATIVE: CASE EVENT DATE: 20220705
